FAERS Safety Report 18153768 (Version 1)
Quarter: 2020Q3

REPORT INFORMATION
  Report Type: Spontaneous
  Country: US (occurrence: US)
  Receive Date: 20200816
  Receipt Date: 20200816
  Transmission Date: 20201103
  Serious: No
  Sender: FDA-Public Use
  Company Number: US-SA-2020SA209697

PATIENT

DRUGS (1)
  1. LANTUS [Suspect]
     Active Substance: INSULIN GLARGINE
     Dosage: 23 UNITS ONCE DAILY
     Route: 065

REACTIONS (2)
  - Poor quality product administered [Unknown]
  - Blood glucose abnormal [Unknown]
